FAERS Safety Report 24330651 (Version 3)
Quarter: 2025Q3

REPORT INFORMATION
  Report Type: Spontaneous
  Country: EU (occurrence: EU)
  Receive Date: 20240918
  Receipt Date: 20250903
  Transmission Date: 20251020
  Serious: Yes (Other)
  Sender: ALKEM
  Company Number: None

PATIENT
  Age: 42 Year
  Sex: Male

DRUGS (14)
  1. PREGABALIN [Suspect]
     Active Substance: PREGABALIN
     Indication: Drug abuse
     Route: 065
  2. GABAPENTIN [Suspect]
     Active Substance: GABAPENTIN
     Indication: Drug abuse
     Route: 065
  3. TEMAZEPAM [Suspect]
     Active Substance: TEMAZEPAM
     Indication: Drug abuse
     Route: 065
  4. BUPRENORPHINE [Suspect]
     Active Substance: BUPRENORPHINE
     Indication: Drug abuse
     Route: 065
  5. BENZOYLECGONINE [Suspect]
     Active Substance: BENZOYLECGONINE
     Indication: Drug abuse
     Route: 065
  6. CLONAZEPAM [Suspect]
     Active Substance: CLONAZEPAM
     Indication: Drug abuse
     Route: 065
  7. COCAINE [Suspect]
     Active Substance: COCAINE
     Indication: Drug abuse
     Route: 065
  8. DIAZEPAM [Suspect]
     Active Substance: DIAZEPAM
     Indication: Drug abuse
     Route: 065
  9. ECGONINE METHYL ESTER [Suspect]
     Active Substance: ECGONINE METHYL ESTER
     Indication: Drug abuse
     Route: 065
  10. LEVOMETHADONE [Suspect]
     Active Substance: LEVOMETHADONE
     Indication: Drug abuse
     Route: 065
  11. MIDOMAFETAMINE [Suspect]
     Active Substance: MIDOMAFETAMINE
     Indication: Drug abuse
     Route: 065
  12. NORDAZEPAM [Suspect]
     Active Substance: NORDAZEPAM
     Indication: Drug abuse
     Route: 065
  13. OXAZEPAM [Suspect]
     Active Substance: OXAZEPAM
     Indication: Drug abuse
     Route: 065
  14. TENAMFETAMINE [Suspect]
     Active Substance: TENAMFETAMINE
     Indication: Drug abuse
     Route: 065

REACTIONS (1)
  - Drug abuse [Unknown]
